FAERS Safety Report 15906291 (Version 1)
Quarter: 2019Q1

REPORT INFORMATION
  Report Type: Report from Study
  Country: PL (occurrence: PL)
  Receive Date: 20190204
  Receipt Date: 20190204
  Transmission Date: 20190417
  Serious: Yes (Hospitalization)
  Sender: FDA-Public Use
  Company Number: PL-SAKK-2019SA011618AA

PATIENT
  Age: 61 Year
  Sex: Female
  Weight: 68 kg

DRUGS (7)
  1. AMIKACIN. [Concomitant]
     Active Substance: AMIKACIN
     Dosage: UNK UNK, UNK
     Route: 042
  2. FORTUM [CEFTAZIDIME] [Concomitant]
     Active Substance: CEFTAZIDIME
     Dosage: UNK UNK, UNK
     Route: 042
  3. ZINACEF [CEFUROXIME] [Concomitant]
     Dosage: UNK UNK, UNK
     Route: 042
  4. METOCLOPRAMID [METOCLOPRAMIDE] [Concomitant]
     Active Substance: METOCLOPRAMIDE
     Dosage: UNK UNK, UNK
     Route: 065
  5. VANDETANIB. [Suspect]
     Active Substance: VANDETANIB
     Indication: MEDULLARY THYROID CANCER
     Dosage: 300 MG, QD
     Route: 048
     Dates: start: 20070723, end: 20181121
  6. HELICID [OMEPRAZOLE] [Concomitant]
     Dosage: UNK UNK, UNK
     Route: 048
  7. CLEXAN [Concomitant]
     Active Substance: ENOXAPARIN SODIUM
     Dosage: 60 MG, QD
     Route: 058

REACTIONS (1)
  - Peritonitis [Recovered/Resolved]

NARRATIVE: CASE EVENT DATE: 20181122
